FAERS Safety Report 25856384 (Version 1)
Quarter: 2025Q3

REPORT INFORMATION
  Report Type: Spontaneous
  Country: JP (occurrence: JP)
  Receive Date: 20250928
  Receipt Date: 20250928
  Transmission Date: 20251020
  Serious: Yes (Life-Threatening, Hospitalization, Other)
  Sender: NOVARTIS
  Company Number: JP-002147023-NVSJ2025JP008232

PATIENT
  Age: 85 Year
  Sex: Male
  Weight: 62 kg

DRUGS (13)
  1. SCEMBLIX [Suspect]
     Active Substance: ASCIMINIB HYDROCHLORIDE
     Indication: Chronic myeloid leukaemia
     Dosage: 40 MG, QD
     Route: 048
     Dates: start: 20250610, end: 20250722
  2. DILTIAZEM [Concomitant]
     Active Substance: DILTIAZEM
     Indication: Hypertension
     Dosage: 100 MG, QD
     Route: 048
     Dates: start: 20250610, end: 20250814
  3. DILTIAZEM [Concomitant]
     Active Substance: DILTIAZEM
     Dosage: 100 MG, QD
     Route: 048
  4. VIBEGRON [Concomitant]
     Active Substance: VIBEGRON
     Indication: Hypertonic bladder
     Dosage: 50 MG, QD
     Route: 048
     Dates: start: 20250610, end: 20250814
  5. VIBEGRON [Concomitant]
     Active Substance: VIBEGRON
     Dosage: 50 MG, QD
     Route: 048
  6. METGLUCO [Concomitant]
     Active Substance: METFORMIN HYDROCHLORIDE
     Indication: Diabetes mellitus
     Dosage: 250 MG, BID
     Route: 048
     Dates: start: 20250610, end: 20250814
  7. METGLUCO [Concomitant]
     Active Substance: METFORMIN HYDROCHLORIDE
     Dosage: 250 MG, BID
     Route: 048
  8. RABEPRAZOLE SODIUM [Concomitant]
     Active Substance: RABEPRAZOLE SODIUM
     Indication: Gastrooesophageal reflux disease
     Dosage: 10 MG, QD
     Route: 048
     Dates: start: 20250610, end: 20250814
  9. RABEPRAZOLE SODIUM [Concomitant]
     Active Substance: RABEPRAZOLE SODIUM
     Dosage: 10 MG, QD
     Route: 048
  10. URSO [Concomitant]
     Active Substance: URSODIOL
     Indication: Cholelithiasis
     Dosage: 100 MG, TID
     Route: 048
     Dates: start: 20250610, end: 20250814
  11. URSO [Concomitant]
     Active Substance: URSODIOL
     Dosage: 100 MG, TID
     Route: 048
  12. BILASTINE [Concomitant]
     Active Substance: BILASTINE
     Indication: Asthma
     Dosage: 20 MG, QD
     Route: 048
     Dates: start: 20250610, end: 20250814
  13. BILASTINE [Concomitant]
     Active Substance: BILASTINE
     Dosage: 20 MG, QD
     Route: 048

REACTIONS (2)
  - Chronic myeloid leukaemia transformation [Not Recovered/Not Resolved]
  - Pancytopenia [Not Recovered/Not Resolved]

NARRATIVE: CASE EVENT DATE: 20250722
